FAERS Safety Report 9214604 (Version 1)
Quarter: 2013Q2

REPORT INFORMATION
  Report Type: Spontaneous
  Country: US (occurrence: None)
  Receive Date: 20130403
  Receipt Date: 20130403
  Transmission Date: 20140414
  Serious: Yes (Death, Hospitalization, Other)
  Sender: FDA-Public Use
  Company Number: DAV-AE-LOR-13-01

PATIENT
  Age: 65 Year
  Sex: Female

DRUGS (2)
  1. LORAZEPAM [Suspect]
  2. VENLAFAXINE (IMMEDIATE RELEASE) [Concomitant]

REACTIONS (5)
  - Cardiogenic shock [None]
  - Somnolence [None]
  - Blood lactic acid increased [None]
  - Blood creatinine increased [None]
  - Electrocardiogram QRS complex prolonged [None]
